FAERS Safety Report 8100566-4 (Version None)
Quarter: 2012Q1

REPORT INFORMATION
  Report Type: 
  Country: None (occurrence: None)
  Receive Date: 20120129
  Receipt Date: 20111118
  Transmission Date: 20120608
  Serious: No
  Sender: FDA-Public Use
  Company Number: US-ABBOTT-11P-163-0875620-00

PATIENT
  Sex: Female
  Weight: 56.296 kg

DRUGS (2)
  1. HUMIRA [Suspect]
     Route: 058
     Dates: start: 20110201, end: 20110301
  2. HUMIRA [Suspect]
     Indication: RHEUMATOID ARTHRITIS
     Route: 058
     Dates: start: 20101101, end: 20110201

REACTIONS (1)
  - WEIGHT INCREASED [None]
